FAERS Safety Report 7655872-4 (Version None)
Quarter: 2011Q3

REPORT INFORMATION
  Report Type: 
  Country: None (occurrence: None)
  Receive Date: 20110729
  Receipt Date: 20110720
  Transmission Date: 20111222
  Serious: Yes (Other)
  Sender: FDA-Public Use
  Company Number: 2011SP034190

PATIENT
  Sex: Male

DRUGS (4)
  1. SEROQUEL [Concomitant]
  2. VALPROATE SODIUM [Concomitant]
  3. SYCREST (ASENAPINE) [Suspect]
     Indication: PRODUCT USED FOR UNKNOWN INDICATION
     Dosage: 10 MG, QD
  4. LITHIUM CARBONATE [Concomitant]

REACTIONS (3)
  - PARADOXICAL DRUG REACTION [None]
  - AGGRESSION [None]
  - RESTLESSNESS [None]
